FAERS Safety Report 6423533-5 (Version None)
Quarter: 2009Q4

REPORT INFORMATION
  Report Type: 
  Country: None (occurrence: None)
  Receive Date: 20091102
  Receipt Date: 20090211
  Transmission Date: 20100525
  Serious: Yes (Other)
  Sender: FDA-Public Use
  Company Number: A0768234A

PATIENT
  Sex: Male

DRUGS (3)
  1. RYTHMOL SR [Suspect]
     Indication: ATRIAL FIBRILLATION
     Dosage: 225MG PER DAY
     Route: 048
     Dates: start: 20081201
  2. BLOOD PRESSURE MEDICATION [Concomitant]
  3. CHOLESTEROL REDUCING AGENT [Concomitant]

REACTIONS (2)
  - ATRIAL FIBRILLATION [None]
  - COUGH [None]
